FAERS Safety Report 24405423 (Version 1)
Quarter: 2024Q4

REPORT INFORMATION
  Report Type: Spontaneous
  Country: CH (occurrence: CH)
  Receive Date: 20241007
  Receipt Date: 20241007
  Transmission Date: 20250115
  Serious: Yes (Hospitalization)
  Sender: OTSUKA
  Company Number: CH-LUNDBECK-DKLU4004776

PATIENT

DRUGS (1)
  1. REXULTI [Suspect]
     Active Substance: BREXPIPRAZOLE
     Indication: Bipolar disorder
     Dosage: 4 MILLIGRAM
     Route: 065

REACTIONS (4)
  - Restless legs syndrome [Unknown]
  - Akathisia [Unknown]
  - Blood prolactin increased [Unknown]
  - Product use in unapproved indication [Unknown]
